FAERS Safety Report 21869505 (Version 1)
Quarter: 2023Q1

REPORT INFORMATION
  Report Type: Spontaneous
  Country: US (occurrence: US)
  Receive Date: 20230117
  Receipt Date: 20230117
  Transmission Date: 20230418
  Serious: Yes (Other)
  Sender: FDA-Public Use
  Company Number: US-SPECGX-T202300438

PATIENT
  Age: 49 Year
  Sex: Male

DRUGS (1)
  1. METHYLPHENIDATE HYDROCHLORIDE [Suspect]
     Active Substance: METHYLPHENIDATE HYDROCHLORIDE
     Indication: Encephalopathy
     Dosage: UNK
     Route: 065

REACTIONS (5)
  - Autonomic nervous system imbalance [Recovered/Resolved]
  - Major depression [Recovered/Resolved]
  - Acute psychosis [Recovered/Resolved]
  - Catatonia [Recovered/Resolved]
  - Drug ineffective for unapproved indication [Unknown]
